FAERS Safety Report 23033010 (Version 5)
Quarter: 2024Q1

REPORT INFORMATION
  Report Type: Spontaneous
  Country: US (occurrence: US)
  Receive Date: 20231005
  Receipt Date: 20240116
  Transmission Date: 20240410
  Serious: No
  Sender: FDA-Public Use
  Company Number: US-002147023-NVSC2023US214876

PATIENT
  Age: 3 Year
  Sex: Female
  Weight: 1.4 kg

DRUGS (5)
  1. ILARIS [Suspect]
     Active Substance: CANAKINUMAB
     Indication: Still^s disease
     Dosage: 60 MG EVERY 4 WEEKS
     Route: 058
     Dates: start: 20230703
  2. ILARIS [Suspect]
     Active Substance: CANAKINUMAB
     Dosage: 60 MG EVERY 4 WEEKS
     Route: 058
  3. METHOTREXATE [Concomitant]
     Active Substance: METHOTREXATE
     Indication: Product used for unknown indication
     Dosage: 7.5 MG, QW
     Route: 065
  4. METHOTREXATE [Concomitant]
     Active Substance: METHOTREXATE
     Indication: Still^s disease
  5. IBUPROFEN [Concomitant]
     Active Substance: IBUPROFEN
     Indication: Still^s disease
     Dosage: 200 MG, TID
     Route: 048

REACTIONS (1)
  - Rash [Not Recovered/Not Resolved]

NARRATIVE: CASE EVENT DATE: 20230922
